FAERS Safety Report 8590261-X (Version None)
Quarter: 2012Q3

REPORT INFORMATION
  Report Type: 
  Country: None (occurrence: None)
  Receive Date: 20120813
  Receipt Date: 20111110
  Transmission Date: 20120928
  Serious: Yes (Other)
  Sender: FDA-Public Use
  Company Number: US-GLAXOSMITHKLINE-A0952632A

PATIENT
  Age: 60 Year
  Sex: Female
  Weight: 69 kg

DRUGS (2)
  1. NO CONCURRENT MEDICATION [Concomitant]
  2. RYTHMOL [Suspect]
     Indication: ATRIAL FIBRILLATION
     Dosage: 225MG THREE TIMES PER DAY
     Route: 048
     Dates: start: 19960101

REACTIONS (5)
  - ASTHENIA [None]
  - DIZZINESS [None]
  - ABASIA [None]
  - ATRIAL FIBRILLATION [None]
  - FATIGUE [None]
